FAERS Safety Report 8997264 (Version 2)
Quarter: 2013Q1

REPORT INFORMATION
  Report Type: Spontaneous
  Country: US (occurrence: US)
  Receive Date: 20130104
  Receipt Date: 20130114
  Transmission Date: 20140127
  Serious: No
  Sender: FDA-Public Use
  Company Number: US-PFIZER INC-2013002200

PATIENT
  Sex: Male

DRUGS (1)
  1. TIKOSYN [Suspect]
     Dosage: UNK
     Dates: start: 1994

REACTIONS (5)
  - Hearing impaired [Unknown]
  - Influenza like illness [Unknown]
  - Nasopharyngitis [Unknown]
  - Nervousness [Unknown]
  - Memory impairment [Unknown]
